FAERS Safety Report 10544241 (Version 1)
Quarter: 2014Q4

REPORT INFORMATION
  Report Type: Spontaneous
  Country: US (occurrence: US)
  Receive Date: 20141027
  Receipt Date: 20141027
  Transmission Date: 20150529
  Serious: No
  Sender: FDA-Public Use
  Company Number: US-TEVA-517509USA

PATIENT
  Age: 30 Year

DRUGS (1)
  1. COPAXONE [Suspect]
     Active Substance: GLATIRAMER ACETATE
     Indication: MULTIPLE SCLEROSIS
     Dosage: DOSE AND FREQUENCY NOT PROVIDED

REACTIONS (5)
  - Photopsia [Unknown]
  - Adverse event [Unknown]
  - Headache [Unknown]
  - Eye pain [Unknown]
  - Dizziness [Unknown]
